FAERS Safety Report 9338776 (Version 1)
Quarter: 2013Q2

REPORT INFORMATION
  Report Type: Spontaneous
  Country: US (occurrence: None)
  Receive Date: 20130605
  Receipt Date: 20130605
  Transmission Date: 20140414
  Serious: Yes (Disabling)
  Sender: FDA-Public Use
  Company Number: None

PATIENT
  Age: 39 Year
  Sex: Female
  Weight: 96 kg

DRUGS (1)
  1. METHOTREXATE [Suspect]
     Dosage: EVERY 2 WEEKS
     Route: 038
     Dates: start: 20120201, end: 20130411

REACTIONS (4)
  - Cognitive disorder [None]
  - Muscle twitching [None]
  - Movement disorder [None]
  - Leukoencephalopathy [None]
